FAERS Safety Report 15892811 (Version 1)
Quarter: 2019Q1

REPORT INFORMATION
  Report Type: Report from Study
  Country: US (occurrence: US)
  Receive Date: 20190130
  Receipt Date: 20190130
  Transmission Date: 20190417
  Serious: No
  Sender: FDA-Public Use
  Company Number: US-EXELIXIS-CABO-18016542

PATIENT
  Sex: Male
  Weight: 54.88 kg

DRUGS (2)
  1. CABOMETYX [Suspect]
     Active Substance: CABOZANTINIB S-MALATE
     Indication: THYROID CANCER METASTATIC
     Dosage: 40 MG, QD (20 MG 2 TABS DAILY FOR 1 MONTH)
     Route: 048
     Dates: start: 201809, end: 20180929
  2. DIGOXIN. [Concomitant]
     Active Substance: DIGOXIN

REACTIONS (3)
  - Malignant neoplasm progression [Unknown]
  - Blood pressure increased [Unknown]
  - Off label use [Unknown]

NARRATIVE: CASE EVENT DATE: 2018
